FAERS Safety Report 25674463 (Version 2)
Quarter: 2025Q3

REPORT INFORMATION
  Report Type: Spontaneous
  Country: US (occurrence: US)
  Receive Date: 20250813
  Receipt Date: 20250908
  Transmission Date: 20251021
  Serious: No
  Sender: APOTEX
  Company Number: US-APOTEX-2025AP011162

PATIENT
  Sex: Female

DRUGS (3)
  1. AZELASTINE HYDROCHLORIDE [Suspect]
     Active Substance: AZELASTINE HYDROCHLORIDE
     Indication: Dry eye
     Dosage: 2 DOSAGE FORM, Q.AM
     Route: 047
  2. AZELASTINE HYDROCHLORIDE [Suspect]
     Active Substance: AZELASTINE HYDROCHLORIDE
     Indication: Eye pruritus
     Dosage: 2 DOSAGE FORM, Q.H.S.
     Route: 047
  3. AZELASTINE HYDROCHLORIDE [Suspect]
     Active Substance: AZELASTINE HYDROCHLORIDE
     Indication: Eye irritation

REACTIONS (4)
  - Vision blurred [Not Recovered/Not Resolved]
  - Lacrimation increased [Not Recovered/Not Resolved]
  - Eye pain [Not Recovered/Not Resolved]
  - Eye pruritus [Not Recovered/Not Resolved]
